FAERS Safety Report 21234092 (Version 2)
Quarter: 2022Q3

REPORT INFORMATION
  Report Type: Report from Study
  Country: JP (occurrence: JP)
  Receive Date: 20220819
  Receipt Date: 20220831
  Transmission Date: 20221027
  Serious: Yes (Hospitalization)
  Sender: FDA-Public Use
  Company Number: JP-PFIZER INC-PV202200032225

PATIENT
  Age: 52 Year
  Sex: Male
  Weight: 63.1 kg

DRUGS (14)
  1. ABROCITINIB [Suspect]
     Active Substance: ABROCITINIB
     Indication: Dermatitis atopic
     Dosage: 200 MG, 1X/DAY (2 TABLETS)
     Route: 048
     Dates: start: 20191210, end: 20220724
  2. WHITE PETROLATUM [Concomitant]
     Active Substance: PETROLATUM
     Indication: Dermatitis atopic
     Dosage: UNK
     Dates: start: 20190715
  3. DIQUAFOSOL TETRASODIUM [Concomitant]
     Active Substance: DIQUAFOSOL TETRASODIUM
     Indication: Dry eye
     Dosage: UNK
     Dates: start: 20180522
  4. FLUOROMETHOLONE [Concomitant]
     Active Substance: FLUOROMETHOLONE
     Indication: Conjunctivitis allergic
     Dosage: UNK
     Dates: start: 20190312
  5. EPINASTINE HYDROCHLORIDE [Concomitant]
     Active Substance: EPINASTINE HYDROCHLORIDE
     Indication: Conjunctivitis allergic
     Dosage: UNK
     Dates: start: 20200310
  6. HEPARINOID [Concomitant]
     Indication: Dermatitis atopic
     Dosage: LOTION
     Dates: start: 20201217
  7. FLUTICASONE FUROATE\VILANTEROL TRIFENATATE [Concomitant]
     Active Substance: FLUTICASONE FUROATE\VILANTEROL TRIFENATATE
     Indication: Asthma
     Dosage: UNK
     Dates: start: 20210322
  8. HEPARINOID [Concomitant]
     Indication: Dermatitis atopic
     Dosage: UNK
     Dates: start: 20211118
  9. TACROLIMUS [Concomitant]
     Active Substance: TACROLIMUS
     Indication: Dermatitis atopic
     Dosage: UNK
     Dates: start: 20200106
  10. HYDROCORTISONE BUTYRATE [Concomitant]
     Active Substance: HYDROCORTISONE BUTYRATE
     Indication: Dermatitis atopic
     Dosage: UNK
     Dates: start: 20201109
  11. RUPATADINE FUMARATE [Concomitant]
     Active Substance: RUPATADINE FUMARATE
     Indication: Dermatitis atopic
     Dosage: UNK
     Dates: start: 20210913
  12. BETAMETHASONE BUTYRATE PROPIONATE [Concomitant]
     Active Substance: BETAMETHASONE BUTYRATE PROPIONATE
     Indication: Dermatitis atopic
     Dosage: UNK
     Dates: start: 20211118
  13. EKSALB [Concomitant]
     Indication: Dermatitis atopic
     Dosage: UNK
     Dates: start: 20211118
  14. LEVOCETIRIZINE HYDROCHLORIDE [Concomitant]
     Active Substance: LEVOCETIRIZINE HYDROCHLORIDE
     Indication: Dermatitis atopic
     Dosage: UNK
     Dates: start: 20211119

REACTIONS (1)
  - Pneumonia legionella [Recovered/Resolved]

NARRATIVE: CASE EVENT DATE: 20220723
